FAERS Safety Report 5716312-5 (Version None)
Quarter: 2008Q2

REPORT INFORMATION
  Report Type: 
  Country: None (occurrence: None)
  Receive Date: 20080416
  Receipt Date: 20070604
  Transmission Date: 20081010
  Serious: Yes (Hospitalization)
  Sender: FDA-Public Use
  Company Number: 2007-BP-07527BP

PATIENT
  Age: 81 Year
  Sex: Male

DRUGS (8)
  1. FLOMAX [Suspect]
     Dosage: 0.4 MG (0.4 MG,QD),PO
     Route: 048
     Dates: start: 19970101
  2. ATIVAN [Concomitant]
  3. RESTORIL [Concomitant]
  4. PRILOSEC [Concomitant]
  5. ZESTRIL [Concomitant]
  6. NORVASC [Concomitant]
  7. PRED FORTE [Concomitant]
  8. GLAUCOMA DROPS (ALL OTHER THERAPEUTIC PRODUCTS) [Concomitant]

REACTIONS (1)
  - SYNCOPE [None]
